FAERS Safety Report 19444303 (Version 1)
Quarter: 2021Q2

REPORT INFORMATION
  Report Type: Spontaneous
  Country: US (occurrence: US)
  Receive Date: 20210621
  Receipt Date: 20210621
  Transmission Date: 20210717
  Serious: No
  Sender: FDA-Public Use
  Company Number: US-SA-2021SA201406

PATIENT
  Sex: Male

DRUGS (1)
  1. DUPIXENT [Suspect]
     Active Substance: DUPILUMAB
     Indication: DERMATITIS ATOPIC
     Dosage: DRUG STRUCTURE DOSAGE : 300 MILLIGRAM DRUG INTERVAL DOSAGE : BI WEEKLY DRUG TREATMENT DURATION: SINC
     Dates: start: 202105

REACTIONS (1)
  - Product temperature excursion issue [Unknown]
